FAERS Safety Report 15440965 (Version 1)
Quarter: 2018Q3

REPORT INFORMATION
  Report Type: Report from Study
  Country: CA (occurrence: CA)
  Receive Date: 20180928
  Receipt Date: 20180928
  Transmission Date: 20181010
  Serious: Yes (Other)
  Sender: FDA-Public Use
  Company Number: CA-JNJFOC-20180837441

PATIENT
  Sex: Female
  Weight: 83 kg

DRUGS (1)
  1. REMICADE [Suspect]
     Active Substance: INFLIXIMAB
     Indication: CROHN^S DISEASE
     Dosage: STRENGTH = 100 MG????ALSO REPORTED AS 500 MG
     Route: 042

REACTIONS (2)
  - Ear infection [Not Recovered/Not Resolved]
  - Intestinal resection [Unknown]
